FAERS Safety Report 7384790-4 (Version None)
Quarter: 2011Q1

REPORT INFORMATION
  Report Type: 
  Country: None (occurrence: None)
  Receive Date: 20110330
  Receipt Date: 20110322
  Transmission Date: 20110831
  Serious: Yes (Other)
  Sender: FDA-Public Use
  Company Number: US-B.I. PHARMACEUTICALS,INC./RIDGEFIELD-2011-BP-01213BP

PATIENT
  Sex: Female

DRUGS (12)
  1. BYSTOLIC [Concomitant]
     Indication: CARDIAC DISORDER
  2. BYSTOLIC [Concomitant]
     Indication: ATRIAL FIBRILLATION
     Dosage: 10 MG
     Route: 048
  3. COUMADIN [Concomitant]
     Dosage: 10 MG
     Route: 048
  4. CORDARONE [Concomitant]
     Indication: ATRIAL FIBRILLATION
     Dosage: 800 MG
     Route: 048
     Dates: start: 20110102
  5. MAGNESIUM [Concomitant]
     Indication: CARDIAC DISORDER
  6. PRADAXA [Suspect]
     Indication: ATRIAL FIBRILLATION
     Dosage: 300 MG
     Route: 048
     Dates: start: 20101223
  7. CORDARONE [Concomitant]
     Indication: CARDIAC DISORDER
  8. DIZAREL [Concomitant]
     Indication: HYPERTENSION
  9. MAGNESIUM OXIDE [Concomitant]
  10. PRADAXA [Suspect]
     Indication: ANTICOAGULANT THERAPY
  11. MAGNESIUM [Concomitant]
     Indication: ATRIAL FIBRILLATION
  12. DILTIAZEM CD (CARDIZEM CD) [Concomitant]
     Dosage: 240 MG
     Route: 048
     Dates: start: 20110102

REACTIONS (8)
  - HYPERSENSITIVITY [None]
  - PHARYNGEAL OEDEMA [None]
  - OXYGEN SATURATION DECREASED [None]
  - EYE SWELLING [None]
  - GENERALISED OEDEMA [None]
  - DYSPNOEA [None]
  - PRURITUS [None]
  - URTICARIA [None]
